FAERS Safety Report 4364449-8 (Version None)
Quarter: 2004Q2

REPORT INFORMATION
  Report Type: 
  Country: None (occurrence: None)
  Receive Date: 20040525
  Receipt Date: 20040202
  Transmission Date: 20050107
  Serious: Yes (Life-Threatening, Hospitalization, Disabling, Other)
  Sender: FDA-Public Use
  Company Number: BE-GLAXOSMITHKLINE-B0322082A

PATIENT
  Age: 55 Year
  Sex: Male

DRUGS (5)
  1. LAMOTRIGINE [Suspect]
     Indication: BIPOLAR DISORDER
     Dosage: 100MG TWICE PER DAY
     Route: 048
     Dates: start: 20040112, end: 20040131
  2. GINKGO BILOBA EXTRACT [Concomitant]
     Indication: DRUG USE FOR UNKNOWN INDICATION
     Dosage: 60MG UNKNOWN
     Route: 065
  3. SELENIUM TRACE METAL ADDITIVE [Concomitant]
     Indication: DRUG USE FOR UNKNOWN INDICATION
     Dosage: 30UG UNKNOWN
     Route: 048
  4. TRIMEPRAZINE TAB [Concomitant]
     Indication: DRUG USE FOR UNKNOWN INDICATION
     Route: 065
     Dates: start: 20040119
  5. MIRTAZAPINE [Concomitant]
     Indication: DRUG USE FOR UNKNOWN INDICATION
     Dosage: 15MG UNKNOWN
     Route: 065
     Dates: start: 20040120

REACTIONS (12)
  - ANGIONEUROTIC OEDEMA [None]
  - BLOOD ALBUMIN DECREASED [None]
  - BLOOD GLUCOSE INCREASED [None]
  - CONJUNCTIVITIS [None]
  - DERMATITIS BULLOUS [None]
  - DERMATITIS EXFOLIATIVE [None]
  - MALAISE [None]
  - MUCOSAL EROSION [None]
  - PAIN [None]
  - PO2 DECREASED [None]
  - PYREXIA [None]
  - TOXIC EPIDERMAL NECROLYSIS [None]
